FAERS Safety Report 4864004-7 (Version None)
Quarter: 2005Q4

REPORT INFORMATION
  Report Type: 
  Country: None (occurrence: None)
  Receive Date: 20051219
  Receipt Date: 20051207
  Transmission Date: 20060501
  Serious: Yes (Hospitalization, Other)
  Sender: FDA-Public Use
  Company Number: GXKR2005GB02092

PATIENT
  Age: 50 Year
  Sex: Male

DRUGS (4)
  1. ISONIAZID [Suspect]
     Indication: TUBERCULOSIS
  2. RIFAMPICIN [Concomitant]
  3. PYRAZINAMIDE [Concomitant]
  4. PYRIDOXINE (PYRIDOXINE) [Concomitant]

REACTIONS (12)
  - ANAEMIA MEGALOBLASTIC [None]
  - CIRCULATORY COLLAPSE [None]
  - CONTUSION [None]
  - LOSS OF CONSCIOUSNESS [None]
  - NEUTROPHIL HYPERSEGMENTED MORPHOLOGY PRESENT [None]
  - PALLOR [None]
  - PETECHIAE [None]
  - POIKILOCYTOSIS [None]
  - RED BLOOD CELL SIDEROCYTES PRESENT [None]
  - SERUM FERRITIN INCREASED [None]
  - THROMBOCYTOPENIA [None]
  - TREATMENT NONCOMPLIANCE [None]
